FAERS Safety Report 10627879 (Version 1)
Quarter: 2014Q4

REPORT INFORMATION
  Report Type: Spontaneous
  Country: US (occurrence: US)
  Receive Date: 20141205
  Receipt Date: 20141205
  Transmission Date: 20150529
  Serious: No
  Sender: FDA-Public Use
  Company Number: US-BRISTOL-MYERS SQUIBB COMPANY-21418363

PATIENT
  Age: 61 Year
  Sex: Male

DRUGS (1)
  1. ERBITUX [Suspect]
     Active Substance: CETUXIMAB
     Indication: COLORECTAL CANCER STAGE IV
     Route: 042
     Dates: start: 2014

REACTIONS (4)
  - Alopecia [Unknown]
  - Onycholysis [Unknown]
  - Rash [Unknown]
  - Skin disorder [Unknown]

NARRATIVE: CASE EVENT DATE: 2014
